FAERS Safety Report 8499741-9 (Version None)
Quarter: 2012Q3

REPORT INFORMATION
  Report Type: 
  Country: None (occurrence: None)
  Receive Date: 20120710
  Receipt Date: 20120705
  Transmission Date: 20120928
  Serious: No
  Sender: FDA-Public Use
  Company Number: US-PFIZER INC-2012162291

PATIENT
  Sex: Male

DRUGS (1)
  1. SUTENT [Suspect]
     Indication: PANCREATIC CARCINOMA
     Dosage: 12.5 MG, UNK
     Dates: start: 20111220, end: 20120611

REACTIONS (2)
  - PANCREATIC CARCINOMA [None]
  - DISEASE PROGRESSION [None]
